FAERS Safety Report 8097495-1 (Version None)
Quarter: 2012Q1

REPORT INFORMATION
  Report Type: 
  Country: None (occurrence: None)
  Receive Date: 20120129
  Receipt Date: 20120116
  Transmission Date: 20120608
  Serious: Yes (Other)
  Sender: FDA-Public Use
  Company Number: FR-BRISTOL-MYERS SQUIBB COMPANY-16350936

PATIENT
  Age: 26 Year
  Sex: Male

DRUGS (4)
  1. RITONAVIR [Suspect]
  2. ATAZANAVIR [Suspect]
  3. TENOFOVIR DISOPROSIL FUMARATE (VIREAD) [Suspect]
  4. LAMIVUDINE [Suspect]

REACTIONS (1)
  - AGGRESSION [None]
